FAERS Safety Report 4668272-6 (Version None)
Quarter: 2005Q2

REPORT INFORMATION
  Report Type: 
  Country: None (occurrence: None)
  Receive Date: 20050523
  Receipt Date: 20040907
  Transmission Date: 20051028
  Serious: Yes (Other)
  Sender: FDA-Public Use
  Company Number: PHEH2004US09598

PATIENT
  Age: 75 Year
  Sex: Male

DRUGS (18)
  1. ZOMETA [Suspect]
     Indication: OSTEOPOROSIS
     Dosage: 4 MG, QMO
     Dates: start: 20020501, end: 20040301
  2. AREDIA [Suspect]
     Dosage: 120-90MG, QMO,Q2MO, Q3MO
     Route: 042
     Dates: start: 19980101, end: 20020501
  3. AREDIA [Suspect]
     Dosage: 90 MG, QMO
     Route: 042
     Dates: start: 20040301
  4. FOSAMAX [Concomitant]
     Indication: OSTEOPOROSIS
     Dates: start: 19980901, end: 19980101
  5. DIGOXIN [Concomitant]
     Indication: ARRHYTHMIA
     Dosage: .25 MG, QD
     Dates: start: 19980101
  6. PRAVACHOL [Concomitant]
     Indication: HYPERCHOLESTEROLAEMIA
     Dosage: 20 MG, QD
     Dates: start: 19980101
  7. FLONASE [Concomitant]
     Indication: HYPERSENSITIVITY
     Dates: start: 19980101
  8. DECADRON [Concomitant]
     Dosage: 10 MG, UNK
  9. RAPAMUNE [Concomitant]
     Dosage: 1 MG, UNK
     Dates: start: 20040601
  10. ZYPREXA [Concomitant]
     Dosage: 10 MG, UNK
     Dates: start: 20040601
  11. LIPITOR [Concomitant]
     Indication: HYPERCHOLESTEROLAEMIA
     Dosage: 80 MG, UNK
     Dates: start: 20040601
  12. LOVENOX [Concomitant]
     Dosage: 20 MG, QD
  13. TAMBOCOR [Concomitant]
     Dosage: 150 MG, BID
  14. NEURONTIN [Concomitant]
     Dosage: 300 UNK, BID
     Dates: start: 20011031
  15. AMBIEN [Concomitant]
     Dosage: 10 MG, UNK
     Dates: start: 20010815
  16. ARANESP [Concomitant]
     Indication: ANAEMIA
  17. ACCUTANE [Concomitant]
  18. SYNTHROID [Concomitant]

REACTIONS (3)
  - ORAL SURGERY [None]
  - OSTEONECROSIS [None]
  - TOOTH EXTRACTION [None]
